FAERS Safety Report 13971493 (Version 2)
Quarter: 2018Q3

REPORT INFORMATION
  Report Type: Spontaneous
  Country: US (occurrence: US)
  Receive Date: 20170914
  Receipt Date: 20180913
  Transmission Date: 20181010
  Serious: No
  Sender: FDA-Public Use
  Company Number: US-ASTELLAS-2017US030078

PATIENT
  Sex: Male

DRUGS (1)
  1. XTANDI [Suspect]
     Active Substance: ENZALUTAMIDE
     Indication: PROSTATE CANCER
     Route: 048
     Dates: start: 20170627

REACTIONS (6)
  - Insomnia [Recovered/Resolved]
  - Stress [Not Recovered/Not Resolved]
  - Product physical issue [Unknown]
  - Circumstance or information capable of leading to medication error [Unknown]
  - Rash erythematous [Recovered/Resolved]
  - Fatigue [Recovered/Resolved]
